FAERS Safety Report 9256071 (Version 1)
Quarter: 2013Q2

REPORT INFORMATION
  Report Type: Spontaneous
  Country: US (occurrence: US)
  Receive Date: 20130425
  Receipt Date: 20130425
  Transmission Date: 20140414
  Serious: No
  Sender: FDA-Public Use
  Company Number: US-AMGEN-USASP2012019247

PATIENT
  Age: 48 Year
  Sex: Female
  Weight: 67 kg

DRUGS (9)
  1. PEGFILGRASTIM [Suspect]
     Indication: BREAST CANCER
     Dosage: UNK
     Dates: start: 20081017
  2. BEVACIZUMAB [Suspect]
     Dosage: 15 MG/KG, UNK
     Dates: start: 20080904
  3. CYCLOPHOSPHAMIDE [Suspect]
     Dosage: UNK
     Dates: start: 20081016
  4. DOXORUBICIN #1 /00330902/ [Suspect]
     Indication: BREAST CANCER
     Dosage: UNK
     Dates: start: 20081016
  5. PACLITAXEL [Suspect]
     Indication: BREAST CANCER
     Dosage: UNK
     Dates: start: 20090120
  6. BEVACIZUMAB [Concomitant]
     Dosage: 15 MG/KG, UNK
     Dates: start: 20080904
  7. CYCLOPHOSPHAMIDE [Concomitant]
     Dosage: UNK
     Dates: start: 20081016
  8. DOXORUBICIN                    /00330902/ [Concomitant]
     Indication: BREAST CANCER
     Dosage: UNK
     Dates: start: 20081016
  9. PACLITAXEL [Concomitant]
     Indication: BREAST CANCER
     Dosage: UNK
     Dates: start: 20090120

REACTIONS (1)
  - Ejection fraction decreased [Recovered/Resolved with Sequelae]
